FAERS Safety Report 25511087 (Version 1)
Quarter: 2025Q3

REPORT INFORMATION
  Report Type: Spontaneous
  Country: US (occurrence: None)
  Receive Date: 20250703
  Receipt Date: 20250703
  Transmission Date: 20251020
  Serious: Yes (Other)
  Sender: FDA-CTU
  Company Number: None

PATIENT
  Sex: Female

DRUGS (3)
  1. TEZSPIRE [Suspect]
     Active Substance: TEZEPELUMAB-EKKO
     Indication: Asthma
     Dosage: FREQUENCY : MONTHLY;?
     Route: 058
     Dates: start: 20240907
  2. TEZSPIRE INJ 210MG [Concomitant]
  3. ZYRTEC ALLGY CAP 1OMG [Concomitant]

REACTIONS (1)
  - Hospitalisation [None]
